FAERS Safety Report 17046154 (Version 1)
Quarter: 2019Q4

REPORT INFORMATION
  Report Type: Report from Study
  Country: US (occurrence: US)
  Receive Date: 20191119
  Receipt Date: 20191119
  Transmission Date: 20200122
  Serious: Yes (Hospitalization, Other)
  Sender: FDA-Public Use
  Company Number: US-BIOGEN-2019BI00807389

PATIENT
  Sex: Female

DRUGS (1)
  1. TECFIDERA [Suspect]
     Active Substance: DIMETHYL FUMARATE
     Indication: MULTIPLE SCLEROSIS
     Dosage: MAINTENANCE DOSE
     Route: 048
     Dates: start: 2016

REACTIONS (11)
  - Hypotension [Unknown]
  - Vomiting [Unknown]
  - Septic shock [Unknown]
  - Hepatic enzyme increased [Unknown]
  - Decreased interest [Unknown]
  - Upper gastrointestinal haemorrhage [Unknown]
  - Throat tightness [Unknown]
  - Hepatic steatosis [Unknown]
  - Diarrhoea [Unknown]
  - Blood lactic acid increased [Unknown]
  - Nausea [Unknown]
